FAERS Safety Report 6700083-X (Version None)
Quarter: 2010Q2

REPORT INFORMATION
  Report Type: 
  Country: None (occurrence: None)
  Receive Date: 20100428
  Receipt Date: 20100426
  Transmission Date: 20101027
  Serious: Yes (Hospitalization)
  Sender: FDA-Public Use
  Company Number: JP-SP-2008-03667

PATIENT
  Sex: Male

DRUGS (2)
  1. IMMUCYST [Suspect]
     Indication: BLADDER CANCER
     Route: 043
     Dates: start: 20081001, end: 20081105
  2. LEVOFLOXACIN [Suspect]
     Indication: PROPHYLAXIS
     Route: 048
     Dates: start: 20081001, end: 20081105

REACTIONS (11)
  - ARTHRALGIA [None]
  - CONJUNCTIVAL HYPERAEMIA [None]
  - CONJUNCTIVITIS [None]
  - DYSURIA [None]
  - HEPATIC FUNCTION ABNORMAL [None]
  - MALAISE [None]
  - POLLAKIURIA [None]
  - POLYARTHRITIS [None]
  - PYREXIA [None]
  - REITER'S SYNDROME [None]
  - URETHRITIS [None]
